FAERS Safety Report 8893380 (Version 1)
Quarter: 2012Q4

REPORT INFORMATION
  Report Type: 
  Country: GB (occurrence: GB)
  Receive Date: 20121108
  Receipt Date: 20121108
  Transmission Date: 20130627
  Serious: Yes (Hospitalization, Other)
  Sender: FDA-Public Use
  Company Number: PHFR2012GB004731

PATIENT
  Age: 47 Year
  Sex: Male

DRUGS (3)
  1. CLOZARIL [Suspect]
     Indication: SCHIZOPHRENIA
     Dosage: 450 mg, UNK
     Route: 048
     Dates: start: 20100906, end: 20120829
  2. AMISULPRIDE [Concomitant]
     Indication: SCHIZOPHRENIA
     Dosage: 400 mg, UNK
     Route: 048
     Dates: start: 20120902
  3. PIRENZEPINE [Concomitant]
     Indication: SCHIZOPHRENIA
     Dosage: 150 mg, UNK
     Route: 048
     Dates: start: 20120902

REACTIONS (11)
  - Cholecystitis [Recovering/Resolving]
  - Abdominal pain [Unknown]
  - Vomiting [Unknown]
  - Jaundice [Unknown]
  - Liver function test abnormal [Unknown]
  - Blood alkaline phosphatase increased [Unknown]
  - Alanine aminotransferase increased [Unknown]
  - Cholestasis [Recovering/Resolving]
  - Bundle branch block right [Not Recovered/Not Resolved]
  - Mental disorder [Unknown]
  - Electrocardiogram QT prolonged [Not Recovered/Not Resolved]
